FAERS Safety Report 7445211-6 (Version None)
Quarter: 2011Q2

REPORT INFORMATION
  Report Type: 
  Country: None (occurrence: None)
  Receive Date: 20110427
  Receipt Date: 20110427
  Transmission Date: 20111010
  Serious: Yes (Hospitalization)
  Sender: FDA-Public Use
  Company Number: None

PATIENT
  Sex: Female
  Weight: 60.7 kg

DRUGS (3)
  1. FLUOROURACIL [Suspect]
     Dosage: 3380 MG
  2. ERBITUX [Suspect]
     Dosage: 1305 MG
  3. CISPLATIN [Suspect]
     Dosage: 60 MG

REACTIONS (2)
  - SKIN DISORDER [None]
  - DEHYDRATION [None]
